FAERS Safety Report 16168113 (Version 2)
Quarter: 2019Q2

REPORT INFORMATION
  Report Type: Spontaneous
  Country: US (occurrence: US)
  Receive Date: 20190408
  Receipt Date: 20190604
  Transmission Date: 20190711
  Serious: No
  Sender: FDA-Public Use
  Company Number: US-PFIZER INC-2019147278

PATIENT
  Age: 52 Year
  Sex: Male

DRUGS (1)
  1. EUCRISA [Suspect]
     Active Substance: CRISABOROLE
     Indication: DERMATITIS
     Dosage: UNK, 2X/DAY
     Route: 061
     Dates: start: 20190313, end: 20190325

REACTIONS (1)
  - Condition aggravated [Recovered/Resolved]
